FAERS Safety Report 13261152 (Version 2)
Quarter: 2017Q2

REPORT INFORMATION
  Report Type: Report from Study
  Country: US (occurrence: US)
  Receive Date: 20170222
  Receipt Date: 20170427
  Transmission Date: 20170830
  Serious: Yes (Hospitalization, Other)
  Sender: FDA-Public Use
  Company Number: US-GILEAD-2016-0231831

PATIENT
  Age: 83 Year
  Sex: Female
  Weight: 49 kg

DRUGS (7)
  1. VITAMIN D                          /00107901/ [Concomitant]
     Active Substance: ERGOCALCIFEROL
  2. IDELALISIB [Suspect]
     Active Substance: IDELALISIB
     Indication: LYMPHOMA
     Dosage: 150 MG, BID
     Route: 048
     Dates: start: 20160906
  3. IDELALISIB [Suspect]
     Active Substance: IDELALISIB
     Dosage: 100 MG, QD
     Route: 048
     Dates: start: 20170106, end: 20170131
  4. IDELALISIB [Suspect]
     Active Substance: IDELALISIB
     Dosage: 100 MG, BID
     Route: 048
     Dates: start: 20160902
  5. BOOST [Concomitant]
     Active Substance: DIETARY SUPPLEMENT
  6. IDELALISIB [Suspect]
     Active Substance: IDELALISIB
     Indication: B-CELL LYMPHOMA
     Dosage: 100 MG, BID
     Route: 048
     Dates: start: 20160906, end: 20161229
  7. ENSURE [Concomitant]
     Active Substance: AMINO ACIDS\DEXTROSE\ELECTROLYTES NOS\SOYBEAN OIL\VITAMINS

REACTIONS (40)
  - Hypophagia [Unknown]
  - Balance disorder [Recovered/Resolved]
  - Oral pain [Not Recovered/Not Resolved]
  - Dry mouth [Not Recovered/Not Resolved]
  - Skin odour abnormal [Not Recovered/Not Resolved]
  - Nausea [Recovered/Resolved]
  - Pruritus [Not Recovered/Not Resolved]
  - Gastrooesophageal reflux disease [Not Recovered/Not Resolved]
  - Asthenia [Unknown]
  - Dyspnoea [Unknown]
  - Stomatitis [Unknown]
  - Hypokinesia [Unknown]
  - Feeling cold [Not Recovered/Not Resolved]
  - Balance disorder [Unknown]
  - Hepatic enzyme decreased [Unknown]
  - Oropharyngeal pain [Not Recovered/Not Resolved]
  - Oral candidiasis [Recovering/Resolving]
  - Skin discolouration [Unknown]
  - Weight fluctuation [Recovered/Resolved]
  - Decreased appetite [Unknown]
  - Chills [Unknown]
  - Off label use [Unknown]
  - Product use complaint [Unknown]
  - Fatigue [Not Recovered/Not Resolved]
  - Cough [Not Recovered/Not Resolved]
  - Oral disorder [Not Recovered/Not Resolved]
  - Urine odour abnormal [Not Recovered/Not Resolved]
  - Night sweats [Unknown]
  - Pulmonary embolism [Unknown]
  - Weight decreased [Unknown]
  - Diarrhoea [Recovered/Resolved]
  - Sensation of foreign body [Recovered/Resolved]
  - Alopecia [Unknown]
  - Sputum discoloured [Unknown]
  - Asthenia [Unknown]
  - Abdominal distension [Recovered/Resolved]
  - Dysphagia [Recovering/Resolving]
  - Weight decreased [Recovered/Resolved]
  - Constipation [Recovered/Resolved]
  - Hepatic enzyme increased [Unknown]

NARRATIVE: CASE EVENT DATE: 201609
